FAERS Safety Report 5523195-5 (Version None)
Quarter: 2007Q4

REPORT INFORMATION
  Report Type: 
  Country: None (occurrence: None)
  Receive Date: 20071116
  Receipt Date: 20071116
  Transmission Date: 20080405
  Serious: Yes (Other)
  Sender: FDA-Public Use
  Company Number: None

PATIENT
  Sex: Female

DRUGS (3)
  1. FERRIC SUBSULFATE -MOSEL'S SOLUTION-16OZ HEALTHLINK [Suspect]
     Indication: COLONOSCOPY
     Dates: start: 20071101, end: 20071102
  2. FERRIC SUBSULFATE -MOSEL'S SOLUTION-16OZ HEALTHLINK [Suspect]
     Indication: HAEMORRHAGE
     Dates: start: 20071101, end: 20071102
  3. FERRIC SUBSULFATE -MOSEL'S SOLUTION-16OZ HEALTHLINK [Suspect]
     Indication: PROPHYLAXIS
     Dates: start: 20071101, end: 20071102

REACTIONS (6)
  - DYSURIA [None]
  - INSOMNIA [None]
  - PAIN [None]
  - PHARMACEUTICAL PRODUCT COMPLAINT [None]
  - POST PROCEDURAL COMPLICATION [None]
  - VULVOVAGINAL DISCOMFORT [None]
